FAERS Safety Report 23377137 (Version 1)
Quarter: 2024Q1

REPORT INFORMATION
  Report Type: Spontaneous
  Country: US (occurrence: US)
  Receive Date: 20240108
  Receipt Date: 20240108
  Transmission Date: 20240410
  Serious: Yes (Hospitalization, Other)
  Sender: FDA-Public Use
  Company Number: US-MLMSERVICE-20231226-4741713-1

PATIENT
  Sex: Male

DRUGS (5)
  1. LEVETIRACETAM [Suspect]
     Active Substance: LEVETIRACETAM
     Indication: Cortical dysplasia
  2. TOPIRAMATE [Suspect]
     Active Substance: TOPIRAMATE
     Indication: Cortical dysplasia
  3. PHENOBARBITAL [Suspect]
     Active Substance: PHENOBARBITAL
     Indication: Cortical dysplasia
  4. MIDAZOLAM [Suspect]
     Active Substance: MIDAZOLAM
     Indication: Cortical dysplasia
     Dosage: CONTINUOUS
  5. FOSPHENYTOIN [Suspect]
     Active Substance: FOSPHENYTOIN
     Indication: Cortical dysplasia

REACTIONS (2)
  - Haemodynamic instability [Recovering/Resolving]
  - Off label use [Unknown]
